FAERS Safety Report 5893168-1 (Version None)
Quarter: 2008Q3

REPORT INFORMATION
  Report Type: 
  Country: None (occurrence: None)
  Receive Date: 20080923
  Receipt Date: 20070906
  Transmission Date: 20090109
  Serious: No
  Sender: FDA-Public Use
  Company Number: US-ASTRAZENECA-2007UW21126

PATIENT
  Age: 40 Year
  Sex: Male

DRUGS (3)
  1. SEROQUEL [Suspect]
     Dosage: 200 MG TWO OR THREE TIMES DAILY
     Route: 048
  2. HALDOL [Concomitant]
  3. LITHIUM CARBONATE [Concomitant]

REACTIONS (4)
  - AKATHISIA [None]
  - MUSCULOSKELETAL STIFFNESS [None]
  - SEDATION [None]
  - TRISMUS [None]
